FAERS Safety Report 7293483-3 (Version None)
Quarter: 2011Q1

REPORT INFORMATION
  Report Type: 
  Country: None (occurrence: None)
  Receive Date: 20110215
  Receipt Date: 20110209
  Transmission Date: 20110831
  Serious: Yes (Hospitalization)
  Sender: FDA-Public Use
  Company Number: AT-GILEAD-2010-0034151

PATIENT
  Sex: Female

DRUGS (1)
  1. TRUVADA [Suspect]
     Indication: HIV INFECTION
     Dates: start: 20080429, end: 20090620

REACTIONS (2)
  - GLOMERULAR FILTRATION RATE DECREASED [None]
  - BONE PAIN [None]
